FAERS Safety Report 5338104-1 (Version None)
Quarter: 2007Q2

REPORT INFORMATION
  Report Type: 
  Country: None (occurrence: None)
  Receive Date: 20070327
  Receipt Date: 20061206
  Transmission Date: 20071010
  Serious: Yes (Life-Threatening, Hospitalization)
  Sender: FDA-Public Use
  Company Number: 233202

PATIENT
  Age: 66 Year
  Sex: Female
  Weight: 66.7 kg

DRUGS (9)
  1. AVASTIN [Suspect]
     Indication: COLON CANCER
     Dosage: 350 MG, Q14D, INTRAVENOUS
     Route: 042
     Dates: start: 20060711
  2. FLUOROURACIL [Concomitant]
  3. LEUCOVORIN CALCIUM [Concomitant]
  4. OXALIPLATIN [Concomitant]
  5. LOPID [Concomitant]
  6. PLAQUENIL [Concomitant]
  7. ADVIL [Concomitant]
  8. MAGNESIUM SULFATE [Concomitant]
  9. CALCIUM CARBONATE [Concomitant]

REACTIONS (1)
  - NEUTROPENIA [None]
